FAERS Safety Report 22987926 (Version 2)
Quarter: 2023Q4

REPORT INFORMATION
  Report Type: Report from Study
  Country: US (occurrence: US)
  Receive Date: 20230926
  Receipt Date: 20231009
  Transmission Date: 20240109
  Serious: Yes (Other)
  Sender: FDA-Public Use
  Company Number: US-ABBVIE-5421720

PATIENT
  Sex: Male

DRUGS (1)
  1. SKYRIZI [Suspect]
     Active Substance: RISANKIZUMAB-RZAA
     Indication: Psoriasis
     Dosage: UNKNOWN
     Route: 058
     Dates: start: 20230613

REACTIONS (5)
  - Medical procedure [Unknown]
  - Compression fracture [Unknown]
  - Ligament rupture [Unknown]
  - Seroma [Not Recovered/Not Resolved]
  - Traumatic haematoma [Unknown]

NARRATIVE: CASE EVENT DATE: 20230101
